FAERS Safety Report 12723847 (Version 3)
Quarter: 2016Q4

REPORT INFORMATION
  Report Type: Other
  Country: US (occurrence: US)
  Receive Date: 20160908
  Receipt Date: 20161229
  Transmission Date: 20170207
  Serious: Yes (Death, Hospitalization, Other)
  Sender: FDA-Public Use
  Company Number: US-ACORDA-ACO_127822_2016

PATIENT
  Age: 67 Year
  Sex: Female

DRUGS (1)
  1. AMPYRA [Suspect]
     Active Substance: DALFAMPRIDINE
     Indication: PRODUCT USED FOR UNKNOWN INDICATION
     Dosage: 10 MG, Q 12 HRS
     Route: 048
     Dates: start: 20131004, end: 20160801

REACTIONS (4)
  - Septic shock [Unknown]
  - Contraindicated product administered [Unknown]
  - Seizure [Unknown]
  - Sepsis [Fatal]

NARRATIVE: CASE EVENT DATE: 201607
